FAERS Safety Report 19309462 (Version 1)
Quarter: 2021Q2

REPORT INFORMATION
  Report Type: Spontaneous
  Country: FR (occurrence: FR)
  Receive Date: 20210525
  Receipt Date: 20210525
  Transmission Date: 20210717
  Serious: Yes (Other)
  Sender: FDA-Public Use
  Company Number: FR-GLAXOSMITHKLINE-FR2021110335

PATIENT
  Age: 11 Year
  Sex: Female
  Weight: 23 kg

DRUGS (1)
  1. LAMICTAL [Suspect]
     Active Substance: LAMOTRIGINE
     Indication: EPILEPSY
     Dosage: 5 MG, QD, PER OS
     Route: 048
     Dates: start: 20210504, end: 20210505

REACTIONS (1)
  - Erythema [Not Recovered/Not Resolved]

NARRATIVE: CASE EVENT DATE: 20210504
